FAERS Safety Report 23231329 (Version 6)
Quarter: 2025Q4

REPORT INFORMATION
  Report Type: Spontaneous
  Country: JP (occurrence: JP)
  Receive Date: 20231127
  Receipt Date: 20251203
  Transmission Date: 20260118
  Serious: Yes (Hospitalization)
  Sender: EISAI
  Company Number: JP-Eisai-202304816_LEN-RCC_P_1

PATIENT
  Age: 74 Year
  Sex: Male

DRUGS (5)
  1. LENVIMA [Suspect]
     Active Substance: LENVATINIB
     Indication: Renal cell carcinoma
     Dosage: 5 TIMES PER 7 DAYS, WEEKENDS OFF
     Route: 048
     Dates: start: 20230309, end: 20230720
  2. LENVIMA [Suspect]
     Active Substance: LENVATINIB
     Dosage: 5 TIMES PER 7 DAYS, WEEKENDS OFF
     Route: 048
  3. LENVIMA [Suspect]
     Active Substance: LENVATINIB
     Dosage: 5 TIMES PER 7 DAYS, WEEKENDS OFF
     Route: 048
  4. KEYTRUDA [Suspect]
     Active Substance: PEMBROLIZUMAB
     Indication: Renal cell carcinoma
     Route: 041
     Dates: start: 20230309, end: 202312
  5. KEYTRUDA [Suspect]
     Active Substance: PEMBROLIZUMAB
     Dosage: DOSE AND FREQUENCY UNKNOWN
     Route: 041

REACTIONS (2)
  - Hypercalcaemia [Recovered/Resolved]
  - Thyroiditis [Recovering/Resolving]

NARRATIVE: CASE EVENT DATE: 20230701
